FAERS Safety Report 4408411-5 (Version None)
Quarter: 2004Q3

REPORT INFORMATION
  Report Type: 
  Country: None (occurrence: None)
  Receive Date: 20040722
  Receipt Date: 20040707
  Transmission Date: 20050211
  Serious: Yes (Death)
  Sender: FDA-Public Use
  Company Number: 2004IC000340

PATIENT
  Age: 44 Year
  Sex: Male

DRUGS (7)
  1. LIBRIUM [Suspect]
  2. BUPROPION HYDROCHLORIDE [Suspect]
     Indication: ALCOHOLISM
     Dosage: 150 MG; TWICE A DAY; ORA
     Route: 048
  3. CARBAMAZEPINE [Suspect]
     Indication: CONVULSION PROPHYLAXIS
     Dosage: ORAL
     Route: 048
  4. NORTRIPTYLINE HCL [Concomitant]
  5. VALPROATE SODIUM [Concomitant]
  6. QUETIAPINE FUMARATE [Concomitant]
  7. CITALOPRAM HYDROBROMIDE [Concomitant]

REACTIONS (5)
  - ALCOHOLISM [None]
  - CONVULSION [None]
  - PULMONARY EMBOLISM [None]
  - ROAD TRAFFIC ACCIDENT [None]
  - SOMNOLENCE [None]
